FAERS Safety Report 10684705 (Version 1)
Quarter: 2014Q4

REPORT INFORMATION
  Report Type: Spontaneous
  Country: US (occurrence: US)
  Receive Date: 20141231
  Receipt Date: 20141231
  Transmission Date: 20150529
  Serious: Yes (Other)
  Sender: FDA-Public Use
  Company Number: US-JNJFOC-20141218309

PATIENT
  Age: 16 Year
  Sex: Female

DRUGS (2)
  1. REMICADE [Suspect]
     Active Substance: INFLIXIMAB
     Indication: COLITIS ULCERATIVE
     Route: 042
     Dates: start: 20141222, end: 20141222
  2. REMICADE [Suspect]
     Active Substance: INFLIXIMAB
     Indication: COLITIS ULCERATIVE
     Route: 042
     Dates: start: 2014

REACTIONS (8)
  - Clostridium difficile infection [Unknown]
  - Infusion related reaction [Recovered/Resolved]
  - Pallor [Recovered/Resolved]
  - Drug ineffective [Unknown]
  - Swollen tongue [Recovered/Resolved]
  - Chills [Recovered/Resolved]
  - Heart rate increased [Recovered/Resolved]
  - Hypotension [Recovered/Resolved]

NARRATIVE: CASE EVENT DATE: 2014
